FAERS Safety Report 16764989 (Version 1)
Quarter: 2019Q3

REPORT INFORMATION
  Report Type: Report from Study
  Country: US (occurrence: US)
  Receive Date: 20190903
  Receipt Date: 20190903
  Transmission Date: 20191005
  Serious: Yes (Other)
  Sender: FDA-Public Use
  Company Number: US-AUROBINDO-AUR-APL-2019-057416

PATIENT

DRUGS (10)
  1. AMOXICILLIN. [Suspect]
     Active Substance: AMOXICILLIN
     Indication: VIRAL HEPATITIS CARRIER
     Dosage: UNK
     Route: 065
  2. IBUPROFEN. [Suspect]
     Active Substance: IBUPROFEN
     Indication: HEPATIC CIRRHOSIS
  3. MEFENAMIC ACID. [Suspect]
     Active Substance: MEFENAMIC ACID
     Indication: VIRAL HEPATITIS CARRIER
     Dosage: UNK
     Route: 065
  4. OFLOXACIN. [Suspect]
     Active Substance: OFLOXACIN
     Indication: VIRAL HEPATITIS CARRIER
     Dosage: UNK
     Route: 065
  5. IBUPROFEN. [Suspect]
     Active Substance: IBUPROFEN
     Indication: VIRAL HEPATITIS CARRIER
     Dosage: UNK
     Route: 065
  6. MEFENAMIC ACID. [Suspect]
     Active Substance: MEFENAMIC ACID
     Indication: HEPATIC CIRRHOSIS
  7. AMOXICILLIN. [Suspect]
     Active Substance: AMOXICILLIN
     Indication: HEPATIC CIRRHOSIS
  8. AMOXICILLIN+CLAVULANIC ACID [Suspect]
     Active Substance: AMOXICILLIN\CLAVULANIC ACID
     Indication: VIRAL HEPATITIS CARRIER
     Dosage: UNK
     Route: 065
  9. AMOXICILLIN+CLAVULANIC ACID [Suspect]
     Active Substance: AMOXICILLIN\CLAVULANIC ACID
     Indication: HEPATIC CIRRHOSIS
  10. OFLOXACIN. [Suspect]
     Active Substance: OFLOXACIN
     Indication: HEPATIC CIRRHOSIS

REACTIONS (5)
  - Conjunctivitis [Unknown]
  - Erythema [Unknown]
  - Skin erosion [Unknown]
  - Blister [Unknown]
  - Stevens-Johnson syndrome [Unknown]
